FAERS Safety Report 19458484 (Version 1)
Quarter: 2021Q2

REPORT INFORMATION
  Report Type: Spontaneous
  Country: US (occurrence: US)
  Receive Date: 20210624
  Receipt Date: 20210624
  Transmission Date: 20210717
  Serious: Yes (Hospitalization, Disabling)
  Sender: FDA-Public Use
  Company Number: None

PATIENT
  Age: 30 Year
  Sex: Female

DRUGS (2)
  1. RISPERDAL CONSTA [Suspect]
     Active Substance: RISPERIDONE
     Dates: start: 20191220
  2. BENZTROPINE. [Suspect]
     Active Substance: BENZTROPINE

REACTIONS (20)
  - Amenorrhoea [None]
  - Drooling [None]
  - Nausea [None]
  - Vision blurred [None]
  - Visual impairment [None]
  - Chest pain [None]
  - Constipation [None]
  - Somnolence [None]
  - Hypersensitivity [None]
  - Blood prolactin increased [None]
  - Muscle spasms [None]
  - Rash [None]
  - Dizziness [None]
  - Pruritus [None]
  - Swelling [None]
  - Hallucination [None]
  - Amnesia [None]
  - Weight increased [None]
  - Fatigue [None]
  - Intestinal obstruction [None]

NARRATIVE: CASE EVENT DATE: 20191220
